FAERS Safety Report 17585214 (Version 2)
Quarter: 2020Q4

REPORT INFORMATION
  Report Type: Spontaneous
  Country: US (occurrence: US)
  Receive Date: 20200326
  Receipt Date: 20201009
  Transmission Date: 20210113
  Serious: Yes (Other)
  Sender: FDA-Public Use
  Company Number: US-TEVA-2020-US-1209813

PATIENT
  Age: 65 Year
  Sex: Female

DRUGS (18)
  1. ALENDRONATE SR [Concomitant]
     Dates: start: 2014
  2. WARFARIN [Concomitant]
     Active Substance: WARFARIN
     Dates: start: 2013
  3. AREDS 2 [Concomitant]
     Active Substance: MINERALS\VITAMINS
     Dosage: 1 MAYBE 2 DAILY
     Dates: start: 2019
  4. ALPRAZOLAM (XANAN) [Concomitant]
     Dosage: 0.25 (1 DAILY 1/2 PM IF NEEDED)
  5. APPLE CIDER VINEGAR [Concomitant]
     Active Substance: APPLE CIDER VINEGAR
     Dosage: 1 ALTERNATE DAYS FROM YEAST
     Dates: start: 2017
  6. CALCIUM 600 D [Concomitant]
     Dates: start: 2014
  7. HYDROCODONE [Concomitant]
     Active Substance: HYDROCODONE
     Indication: PAIN
     Dosage: 5/325 MG
     Dates: start: 2013
  8. BREWERS YEAST [Concomitant]
     Active Substance: SACCHAROMYCES CEREVISIAE
     Dosage: 2 OR 3 TABS (1 ALTERNATE DAYS FROM VINEGAR)
     Dates: start: 2017
  9. METHOTREXATE 2.5 MG [Concomitant]
     Active Substance: METHOTREXATE
     Dosage: 6 TABS/DOSE
     Dates: start: 2014
  10. FLUOXETINE [Suspect]
     Active Substance: FLUOXETINE HYDROCHLORIDE
     Dosage: 20 TO 30 MG/DAY
     Route: 065
     Dates: start: 1998
  11. ALEVE [Concomitant]
     Active Substance: NAPROXEN SODIUM
     Dosage: 1 TO 2 TABS (IF NEEDED)
     Dates: start: 2003
  12. FOLIC ACID. [Concomitant]
     Active Substance: FOLIC ACID
     Dates: start: 2014
  13. PREDNISONE. [Concomitant]
     Active Substance: PREDNISONE
     Dosage: 2.5 MG AM, 2.5 MG PM IF NEEDED
     Dates: start: 2014
  14. PROZAC [Concomitant]
     Active Substance: FLUOXETINE HYDROCHLORIDE
     Dosage: DAILY AM, 20 TO 30 MG ON ALT DAYS
     Dates: start: 1990
  15. CELEBREX [Concomitant]
     Active Substance: CELECOXIB
     Dosage: 1 ALTERNATE DAYS
     Dates: start: 2014
  16. OXYCODONE [Concomitant]
     Active Substance: OXYCODONE
     Indication: PAIN
     Dosage: 5-352 MG
     Dates: start: 2015
  17. VITAMIN D2 [Concomitant]
     Active Substance: ERGOCALCIFEROL
     Dates: start: 2015
  18. VOLTARAN GEL 1 % [Concomitant]
     Indication: PAIN
     Dates: start: 2014

REACTIONS (3)
  - Suicidal behaviour [Recovered/Resolved]
  - Depression [Recovered/Resolved]
  - Crying [Recovered/Resolved]
